FAERS Safety Report 19125479 (Version 4)
Quarter: 2021Q2

REPORT INFORMATION
  Report Type: Report from Study
  Country: BR (occurrence: BR)
  Receive Date: 20210412
  Receipt Date: 20210605
  Transmission Date: 20210717
  Serious: Yes (Other)
  Sender: FDA-Public Use
  Company Number: NVSC2021BR077406

PATIENT
  Age: 63 Year
  Sex: Female
  Weight: 93 kg

DRUGS (4)
  1. KISQALI [Suspect]
     Active Substance: RIBOCICLIB
     Dosage: UNK (3X A DAY, 7 PAUSE DAYS)
     Route: 065
     Dates: start: 20210327
  2. LETROZOLE. [Suspect]
     Active Substance: LETROZOLE
     Dosage: UNK (CONTINUOUS FOR 28 DAYS)
     Route: 065
  3. KISQALI [Suspect]
     Active Substance: RIBOCICLIB
     Indication: METASTASES TO BREAST
     Dosage: 3 DF, QD
     Route: 048
     Dates: start: 20210326
  4. LETROZOLE. [Suspect]
     Active Substance: LETROZOLE
     Indication: BREAST CANCER METASTATIC
     Dosage: 1 DF, QD
     Route: 048
     Dates: start: 20210326

REACTIONS (22)
  - Diarrhoea [Recovered/Resolved]
  - Nasal congestion [Recovering/Resolving]
  - Feeling abnormal [Unknown]
  - Nausea [Recovered/Resolved]
  - Nausea [Recovered/Resolved]
  - Oropharyngeal pain [Recovering/Resolving]
  - Immunodeficiency [Not Recovered/Not Resolved]
  - Insomnia [Recovered/Resolved]
  - Abdominal discomfort [Unknown]
  - Nasopharyngitis [Recovering/Resolving]
  - Rhinorrhoea [Recovering/Resolving]
  - Asthenia [Recovering/Resolving]
  - Eating disorder [Unknown]
  - Malaise [Unknown]
  - Cough [Recovering/Resolving]
  - Haemorrhoidal haemorrhage [Recovered/Resolved]
  - Haemorrhoids [Recovered/Resolved]
  - Blood disorder [Unknown]
  - Alopecia [Unknown]
  - Gingival bleeding [Recovered/Resolved]
  - Epistaxis [Recovering/Resolving]
  - Decreased appetite [Recovered/Resolved]

NARRATIVE: CASE EVENT DATE: 20210327
